FAERS Safety Report 5831233-5 (Version None)
Quarter: 2008Q3

REPORT INFORMATION
  Report Type: 
  Country: None (occurrence: None)
  Receive Date: 20080801
  Receipt Date: 20080131
  Transmission Date: 20090109
  Serious: No
  Sender: FDA-Public Use
  Company Number: US-BRISTOL-MYERS SQUIBB COMPANY-14060818

PATIENT
  Age: 68 Year
  Sex: Female
  Weight: 61 kg

DRUGS (9)
  1. COUMADIN [Suspect]
     Dosage: 2 DOSAGE FORM = 2TAB INITIAL: 2TAB/D REDUCED: 1.5TAB/D INCREASED: 1.5TAB 5D/WK AND 2TAB 2D/WK
     Route: 048
  2. METOPROLOL [Concomitant]
  3. TRAVATAN [Concomitant]
     Route: 047
  4. MULTI-VITAMIN [Concomitant]
  5. VITAMIN B COMPLEX [Concomitant]
  6. VITAMIN E [Concomitant]
  7. FISH OIL [Concomitant]
  8. RED YEAST RICE [Concomitant]
  9. CALCIUM [Concomitant]

REACTIONS (1)
  - INTERNATIONAL NORMALISED RATIO DECREASED [None]
